FAERS Safety Report 24464845 (Version 1)
Quarter: 2024Q4

REPORT INFORMATION
  Report Type: Report from Study
  Country: US (occurrence: US)
  Receive Date: 20241018
  Receipt Date: 20241018
  Transmission Date: 20250115
  Serious: No
  Sender: ROCHE
  Company Number: US-ROCHE-3503133

PATIENT
  Age: 30 Year
  Sex: Female
  Weight: 55.79 kg

DRUGS (10)
  1. XOLAIR [Suspect]
     Active Substance: OMALIZUMAB
     Indication: Urticaria
     Dosage: DATE OF TREATMENT: 16/NOV/2023
     Route: 058
  2. XOLAIR [Suspect]
     Active Substance: OMALIZUMAB
  3. ZYRTEC [Concomitant]
     Active Substance: CETIRIZINE HYDROCHLORIDE
  4. AKLIEF [Concomitant]
     Active Substance: TRIFAROTENE
  5. CLINDAMYCIN PHOSPHATE [Concomitant]
     Active Substance: CLINDAMYCIN PHOSPHATE
  6. EPIPEN [Concomitant]
     Active Substance: EPINEPHRINE
  7. KYLEENA [Concomitant]
     Active Substance: LEVONORGESTREL
  8. PEPCID [Concomitant]
     Active Substance: FAMOTIDINE
  9. ZYRTEC [Concomitant]
     Active Substance: CETIRIZINE HYDROCHLORIDE
  10. ALBUTEROL SULFATE [Concomitant]
     Active Substance: ALBUTEROL SULFATE

REACTIONS (1)
  - Oedema [Unknown]
